FAERS Safety Report 6795079-6 (Version None)
Quarter: 2010Q2

REPORT INFORMATION
  Report Type: 
  Country: None (occurrence: None)
  Receive Date: 20100625
  Receipt Date: 20100617
  Transmission Date: 20101027
  Serious: Yes (Other)
  Sender: FDA-Public Use
  Company Number: PHHY2009TW61013

PATIENT

DRUGS (2)
  1. EXJADE [Suspect]
     Indication: THALASSAEMIA
     Dosage: 10 DF, UNK
     Route: 048
  2. EXJADE [Suspect]
     Dosage: 1250 MG, UNK
     Route: 048

REACTIONS (2)
  - HAND FRACTURE [None]
  - ROAD TRAFFIC ACCIDENT [None]
